FAERS Safety Report 6152210-3 (Version None)
Quarter: 2009Q2

REPORT INFORMATION
  Report Type: 
  Country: None (occurrence: None)
  Receive Date: 20090410
  Receipt Date: 20080606
  Transmission Date: 20091009
  Serious: No
  Sender: FDA-Public Use
  Company Number: US-ASTRAZENECA-2008UW01821

PATIENT
  Age: 16363 Day
  Sex: Female
  Weight: 82.3 kg

DRUGS (3)
  1. TENORMIN [Suspect]
     Route: 048
  2. PREVACID [Concomitant]
  3. POTASSIUM REPLACEMENT [Concomitant]

REACTIONS (3)
  - BLOOD POTASSIUM DECREASED [None]
  - GAIT DISTURBANCE [None]
  - GASTROOESOPHAGEAL REFLUX DISEASE [None]
